FAERS Safety Report 6283654-7 (Version None)
Quarter: 2009Q3

REPORT INFORMATION
  Report Type: 
  Country: None (occurrence: None)
  Receive Date: 20090724
  Receipt Date: 20090722
  Transmission Date: 20100115
  Serious: Yes (Death, Other)
  Sender: FDA-Public Use
  Company Number: PHHY2009JP30564

PATIENT
  Age: 56 Year
  Sex: Female

DRUGS (4)
  1. CYCLOSPORINE [Suspect]
     Indication: MYASTHENIA GRAVIS
     Dosage: UNK
     Dates: start: 20040601
  2. CYCLOSPORINE [Suspect]
     Dosage: 110 MG
  3. PREDNISOLONE [Concomitant]
     Dosage: UNK
     Dates: start: 20040601
  4. PREDNISOLONE [Concomitant]
     Dosage: 18 MG

REACTIONS (12)
  - ALOPECIA [None]
  - AUTOIMMUNE HEPATITIS [None]
  - CATARACT [None]
  - CLOSTRIDIUM COLITIS [None]
  - DIABETIC RETINOPATHY [None]
  - DISEASE RECURRENCE [None]
  - MACULAR DEGENERATION [None]
  - RETINAL PIGMENTATION [None]
  - SKIN DEPIGMENTATION [None]
  - THYMOMA [None]
  - VISION BLURRED [None]
  - VISUAL ACUITY REDUCED [None]
